FAERS Safety Report 8274583-8 (Version None)
Quarter: 2012Q2

REPORT INFORMATION
  Report Type: 
  Country: None (occurrence: None)
  Receive Date: 20120411
  Receipt Date: 20120406
  Transmission Date: 20120825
  Serious: Yes (Other)
  Sender: FDA-Public Use
  Company Number: US-GLAXOSMITHKLINE-A0898903A

PATIENT
  Sex: Female

DRUGS (1)
  1. SORIATANE [Suspect]
     Indication: PSORIASIS
     Dosage: 25MG PER DAY
     Route: 067
     Dates: start: 20101001

REACTIONS (3)
  - ABORTION SPONTANEOUS [None]
  - EXPOSURE VIA SEMEN [None]
  - MATERNAL EXPOSURE DURING PREGNANCY [None]
